FAERS Safety Report 16390393 (Version 2)
Quarter: 2019Q2

REPORT INFORMATION
  Report Type: Spontaneous
  Country: BR (occurrence: BR)
  Receive Date: 20190604
  Receipt Date: 20190618
  Transmission Date: 20190711
  Serious: Yes (Other)
  Sender: FDA-Public Use
  Company Number: BR-ELI_LILLY_AND_COMPANY-BR201905013907

PATIENT
  Sex: Male

DRUGS (4)
  1. HUMALOG [Suspect]
     Active Substance: INSULIN LISPRO
     Indication: PRODUCT USED FOR UNKNOWN INDICATION
     Dosage: UNK, UNKNOWN
     Route: 065
     Dates: start: 2014
  2. HUMULIN N [Suspect]
     Active Substance: INSULIN HUMAN
     Indication: PRODUCT USED FOR UNKNOWN INDICATION
     Dosage: UNK, UNKNOWN
     Route: 065
     Dates: start: 2006, end: 201905
  3. BASAGLAR [Suspect]
     Active Substance: INSULIN GLARGINE
     Indication: PRODUCT USED FOR UNKNOWN INDICATION
     Dosage: 36 INTERNATIONAL UNIT, EACH MORNING
     Route: 065
     Dates: start: 20190525
  4. NOVOLIN NPH [Concomitant]
     Active Substance: INSULIN HUMAN
     Indication: PRODUCT USED FOR UNKNOWN INDICATION
     Dosage: UNK, UNKNOWN
     Dates: start: 2006, end: 201905

REACTIONS (9)
  - Blood creatinine increased [Unknown]
  - Injection site pain [Unknown]
  - Diabetes mellitus inadequate control [Unknown]
  - Injection site bruising [Unknown]
  - Weight decreased [Unknown]
  - Urinary tract infection [Unknown]
  - Weight increased [Unknown]
  - Blood glucose increased [Unknown]
  - Renal failure [Unknown]

NARRATIVE: CASE EVENT DATE: 2015
